FAERS Safety Report 6907338-4 (Version None)
Quarter: 2010Q3

REPORT INFORMATION
  Report Type: 
  Country: None (occurrence: None)
  Receive Date: 20100802
  Receipt Date: 20100720
  Transmission Date: 20110219
  Serious: Yes (Hospitalization)
  Sender: FDA-Public Use
  Company Number: 2010-2592

PATIENT
  Age: 70 Year
  Sex: Male

DRUGS (1)
  1. APO-GO AMPOULES (APO-GO) (APOMORPHINE HYDROCHLORIDE) (APOMORPHINE HYDR [Suspect]
     Indication: PARKINSON'S DISEASE
     Dosage: (FROM 6AM TO 8PM),SUBCUTANEOUS
     Route: 058
     Dates: start: 20090501

REACTIONS (4)
  - DISEASE PROGRESSION [None]
  - HYPERKINESIA [None]
  - MUSCLE RIGIDITY [None]
  - PARKINSON'S DISEASE [None]
